FAERS Safety Report 8255663-X (Version None)
Quarter: 2012Q2

REPORT INFORMATION
  Report Type: 
  Country: None (occurrence: None)
  Receive Date: 20120403
  Receipt Date: 20120327
  Transmission Date: 20120825
  Serious: Yes (Other)
  Sender: FDA-Public Use
  Company Number: PHHY2012BR027592

PATIENT
  Age: 42 Year
  Sex: Female

DRUGS (2)
  1. RITALIN [Suspect]
     Dosage: 1 DF, QD
     Dates: end: 20111001
  2. RITALIN LA [Suspect]
     Indication: ATTENTION DEFICIT/HYPERACTIVITY DISORDER
     Dosage: 1 DF, QD
     Dates: end: 20111001

REACTIONS (3)
  - DEPRESSION [None]
  - ATTENTION DEFICIT/HYPERACTIVITY DISORDER [None]
  - DISCOMFORT [None]
